FAERS Safety Report 7326723-2 (Version None)
Quarter: 2011Q1

REPORT INFORMATION
  Report Type: 
  Country: None (occurrence: None)
  Receive Date: 20110216
  Receipt Date: 20110210
  Transmission Date: 20110831
  Serious: Yes (Death, Hospitalization)
  Sender: FDA-Public Use
  Company Number: 2011SP000433

PATIENT
  Age: 62 Year
  Sex: Male
  Weight: 101 kg

DRUGS (24)
  1. LOSARTAN POTASSIUM [Concomitant]
  2. MS CONTIN [Concomitant]
  3. TYLOX [Concomitant]
  4. MEGESTROL ACETATE [Concomitant]
  5. INSULIN HUMAN INJECTION, ISOPHANE [Concomitant]
  6. MEGESTROL ACETATE [Concomitant]
  7. LEKOVIT [Concomitant]
  8. FUROSEMIDE [Concomitant]
  9. CENTRUM SILVER [Concomitant]
  10. TEMOZOLOMIDE [Suspect]
     Indication: PROSTATE CANCER METASTATIC
     Dosage: PO
     Route: 048
     Dates: start: 20100810
  11. IBUPROFEN [Concomitant]
  12. ABT-888 [Suspect]
     Indication: PROSTATE CANCER METASTATIC
     Dosage: 40 MG, BID, PO
     Route: 048
     Dates: start: 20100810, end: 20101108
  13. TAMSULOSIN [Concomitant]
  14. LACTULOSE [Concomitant]
  15. IBUPROFEN [Concomitant]
  16. COLECALCIFEROL [Concomitant]
  17. INSULIN HUMAN [Concomitant]
  18. SENNA ALEXANDRINA [Concomitant]
  19. LEUPROLIDE ACETATE [Concomitant]
  20. GLIPIZIDE [Concomitant]
  21. CORICIDIN [Concomitant]
  22. ATENOLOL [Concomitant]
  23. ACETYLSALICYLIC ACID [Concomitant]
  24. ZOLEDRONIC ACID [Concomitant]

REACTIONS (25)
  - DYSPNOEA [None]
  - BLOOD LACTATE DEHYDROGENASE INCREASED [None]
  - ASPARTATE AMINOTRANSFERASE INCREASED [None]
  - HAEMATOCRIT DECREASED [None]
  - MUSCULOSKELETAL PAIN [None]
  - OXYGEN SATURATION DECREASED [None]
  - ALANINE AMINOTRANSFERASE INCREASED [None]
  - BLOOD ALKALINE PHOSPHATASE INCREASED [None]
  - RED BLOOD CELL COUNT DECREASED [None]
  - RESPIRATORY FAILURE [None]
  - HAEMOPTYSIS [None]
  - COLD SWEAT [None]
  - BACK PAIN [None]
  - PYREXIA [None]
  - BLOOD GLUCOSE INCREASED [None]
  - HAEMOGLOBIN DECREASED [None]
  - PNEUMONIA [None]
  - POLLAKIURIA [None]
  - DECREASED APPETITE [None]
  - EPISTAXIS [None]
  - RENAL FAILURE [None]
  - PRODUCTIVE COUGH [None]
  - HEPATIC FAILURE [None]
  - BLOOD ALBUMIN DECREASED [None]
  - PLATELET COUNT DECREASED [None]
